FAERS Safety Report 23185490 (Version 1)
Quarter: 2023Q4

REPORT INFORMATION
  Report Type: Spontaneous
  Country: US (occurrence: None)
  Receive Date: 20231115
  Receipt Date: 20231115
  Transmission Date: 20240109
  Serious: Yes (Hospitalization, Other)
  Sender: FDA-Public Use
  Company Number: 2023A255906

PATIENT
  Age: 47 Year
  Sex: Female

DRUGS (1)
  1. XIGDUO XR [Suspect]
     Active Substance: DAPAGLIFLOZIN PROPANEDIOL\METFORMIN HYDROCHLORIDE
     Indication: Diabetes mellitus
     Route: 048
     Dates: start: 2018, end: 202308

REACTIONS (11)
  - Arthropod bite [Unknown]
  - Infection [Unknown]
  - Blister [Unknown]
  - Skin discolouration [Unknown]
  - Foot amputation [Unknown]
  - Bone swelling [Unknown]
  - Osteitis [Unknown]
  - Injury [Unknown]
  - Eye haemorrhage [Unknown]
  - Oxygen saturation decreased [Unknown]
  - Weight increased [Unknown]

NARRATIVE: CASE EVENT DATE: 20210101
